FAERS Safety Report 7637820-6 (Version None)
Quarter: 2011Q3

REPORT INFORMATION
  Report Type: 
  Country: None (occurrence: None)
  Receive Date: 20110720
  Receipt Date: 20110708
  Transmission Date: 20111222
  Serious: Yes (Death, Other)
  Sender: FDA-Public Use
  Company Number: 2010AC000112

PATIENT
  Age: 48 Year
  Sex: Male

DRUGS (3)
  1. NEXIUM [Concomitant]
  2. WARFARIN [Concomitant]
  3. DIGOXIN [Suspect]
     Indication: ATRIAL FIBRILLATION
     Dosage: 0.125 MG;QD;PO
     Route: 048
     Dates: start: 20061028, end: 20080201

REACTIONS (13)
  - CARDIAC DISORDER [None]
  - NAUSEA [None]
  - VISUAL IMPAIRMENT [None]
  - FALL [None]
  - IRRITABILITY [None]
  - GASTROOESOPHAGEAL REFLUX DISEASE [None]
  - CARDIO-RESPIRATORY ARREST [None]
  - MULTIPLE INJURIES [None]
  - NO THERAPEUTIC RESPONSE [None]
  - ECONOMIC PROBLEM [None]
  - DIZZINESS [None]
  - DEPRESSION [None]
  - MYOCARDIAL INFARCTION [None]
